FAERS Safety Report 7315851-3 (Version None)
Quarter: 2011Q1

REPORT INFORMATION
  Report Type: 
  Country: None (occurrence: None)
  Receive Date: 20110225
  Receipt Date: 20110217
  Transmission Date: 20110831
  Serious: Yes (Other)
  Sender: FDA-Public Use
  Company Number: US-AMGEN-USASP2011009689

PATIENT
  Age: 52 Year
  Sex: Male

DRUGS (3)
  1. ENBREL [Suspect]
     Indication: PSORIATIC ARTHROPATHY
  2. ENBREL [Suspect]
     Indication: PSORIASIS
     Dosage: 50 MG, 2 TIMES/WK
     Dates: start: 20050101
  3. HUMIRA [Concomitant]

REACTIONS (8)
  - HYPOAESTHESIA [None]
  - INJECTION SITE PAIN [None]
  - MUSCULOSKELETAL PAIN [None]
  - CHEST PAIN [None]
  - DYSPEPSIA [None]
  - CARPAL TUNNEL SYNDROME [None]
  - LYMPHADENOPATHY [None]
  - PSORIASIS [None]
